FAERS Safety Report 4301449-8 (Version None)
Quarter: 2004Q1

REPORT INFORMATION
  Report Type: 
  Country: None (occurrence: None)
  Receive Date: 20040219
  Receipt Date: 20040211
  Transmission Date: 20041129
  Serious: Yes (Hospitalization)
  Sender: FDA-Public Use
  Company Number: 200400932

PATIENT
  Age: 73 Year
  Sex: Female
  Weight: 45.3597 kg

DRUGS (7)
  1. LUMIGAN [Suspect]
     Indication: GLAUCOMA
     Dosage: 2 DROP QPM EYE
  2. HYDROCHLOROTHIAZIDE [Concomitant]
  3. FOSAMAX [Concomitant]
  4. TIMOPTIC [Concomitant]
  5. PILOCARPINE [Concomitant]
  6. AVAPRO [Concomitant]
  7. ACIPHEX [Concomitant]

REACTIONS (5)
  - BLOOD SODIUM DECREASED [None]
  - CONDITION AGGRAVATED [None]
  - HAEMOGLOBIN DECREASED [None]
  - HYPOTENSION [None]
  - SYNCOPE [None]
